FAERS Safety Report 13786309 (Version 2)
Quarter: 2018Q1

REPORT INFORMATION
  Report Type: Spontaneous
  Country: US (occurrence: US)
  Receive Date: 20170725
  Receipt Date: 20180125
  Transmission Date: 20180508
  Serious: No
  Sender: FDA-Public Use
  Company Number: US-UNITED THERAPEUTICS-UNT-2017-004203

PATIENT
  Sex: Male
  Weight: 99 kg

DRUGS (12)
  1. LETAIRIS [Suspect]
     Active Substance: AMBRISENTAN
     Dosage: 10 MG, QD
     Route: 048
     Dates: start: 20170310
  2. LETAIRIS [Suspect]
     Active Substance: AMBRISENTAN
     Indication: PULMONARY HYPERTENSION
     Dosage: UNK
     Route: 048
  3. TYVASO [Suspect]
     Active Substance: TREPROSTINIL
     Dosage: UNK
  4. METOLAZONE. [Concomitant]
     Active Substance: METOLAZONE
     Indication: PRODUCT USED FOR UNKNOWN INDICATION
  5. SILDENAFIL CITRATE. [Concomitant]
     Active Substance: SILDENAFIL CITRATE
     Indication: PRODUCT USED FOR UNKNOWN INDICATION
  6. ELIQUIS [Concomitant]
     Active Substance: APIXABAN
     Indication: PRODUCT USED FOR UNKNOWN INDICATION
  7. TYVASO [Suspect]
     Active Substance: TREPROSTINIL
     Indication: PULMONARY ARTERIAL HYPERTENSION
     Dosage: 18-54 MICROGRAMS, QID
     Dates: start: 20151014
  8. LETAIRIS [Suspect]
     Active Substance: AMBRISENTAN
     Indication: PULMONARY ARTERIAL HYPERTENSION
     Dosage: 10 MG, QD
     Route: 048
     Dates: start: 20150609
  9. TYVASO [Suspect]
     Active Substance: TREPROSTINIL
     Dosage: 18-72 MICROGRAMS, QID
     Dates: start: 20151014
  10. TYVASO [Suspect]
     Active Substance: TREPROSTINIL
     Dosage: 54 ?G, QID
  11. LETAIRIS [Suspect]
     Active Substance: AMBRISENTAN
     Dosage: UNK
     Route: 048
     Dates: start: 20170310
  12. REVATIO [Suspect]
     Active Substance: SILDENAFIL CITRATE
     Indication: PRODUCT USED FOR UNKNOWN INDICATION
     Dosage: UNK
     Route: 065
     Dates: start: 20170320

REACTIONS (2)
  - Off label use [Unknown]
  - Respiratory tract congestion [Recovered/Resolved]
